FAERS Safety Report 24935674 (Version 1)
Quarter: 2025Q1

REPORT INFORMATION
  Report Type: Report from Study
  Country: US (occurrence: US)
  Receive Date: 20250206
  Receipt Date: 20250206
  Transmission Date: 20250409
  Serious: Yes (Other)
  Sender: EXELIXIS
  Company Number: US-EXELIXIS-CABO-24080135

PATIENT
  Age: 65 Year
  Sex: Male
  Weight: 58.957 kg

DRUGS (3)
  1. CABOMETYX [Suspect]
     Active Substance: CABOZANTINIB S-MALATE
     Indication: Renal cell carcinoma
     Dosage: 40 MG, QD
     Route: 048
     Dates: end: 20240728
  2. CREON [Concomitant]
     Active Substance: PANCRELIPASE AMYLASE\PANCRELIPASE LIPASE\PANCRELIPASE PROTEASE
  3. COLESEVELAM [Concomitant]
     Active Substance: COLESEVELAM

REACTIONS (6)
  - Weight decreased [Recovering/Resolving]
  - Radiotherapy [Unknown]
  - Gallbladder disorder [Recovering/Resolving]
  - Clostridium difficile colitis [Recovering/Resolving]
  - Hernia [Recovering/Resolving]
  - Arthropathy [Recovering/Resolving]

NARRATIVE: CASE EVENT DATE: 20231101
